FAERS Safety Report 21083234 (Version 3)
Quarter: 2022Q4

REPORT INFORMATION
  Report Type: Report from Study
  Country: US (occurrence: US)
  Receive Date: 20220714
  Receipt Date: 20221215
  Transmission Date: 20230112
  Serious: Yes (Hospitalization)
  Sender: FDA-Public Use
  Company Number: US-JNJFOC-20220726418

PATIENT
  Age: 3 Decade
  Sex: Female
  Weight: 142 kg

DRUGS (3)
  1. INFLIXIMAB [Suspect]
     Active Substance: INFLIXIMAB
     Indication: Inflammatory bowel disease
     Route: 041
     Dates: start: 20120626, end: 20150128
  2. HUMIRA [Concomitant]
     Active Substance: ADALIMUMAB
     Dates: end: 20211222
  3. ENTYVIO [Concomitant]
     Active Substance: VEDOLIZUMAB

REACTIONS (2)
  - Crohn^s disease [Recovered/Resolved]
  - Clostridium difficile infection [Recovered/Resolved]

NARRATIVE: CASE EVENT DATE: 20220201
